FAERS Safety Report 6682669-4 (Version None)
Quarter: 2010Q2

REPORT INFORMATION
  Report Type: 
  Country: None (occurrence: None)
  Receive Date: 20100415
  Receipt Date: 20100404
  Transmission Date: 20101027
  Serious: Yes (Other)
  Sender: FDA-Public Use
  Company Number: IN-BAXTER-2010BH008894

PATIENT
  Age: 58 Year
  Sex: Male

DRUGS (2)
  1. DIANEAL [Suspect]
     Indication: PERITONEAL DIALYSIS
     Route: 033
     Dates: start: 20100301
  2. DIANEAL [Suspect]
     Route: 033
     Dates: start: 20100301

REACTIONS (2)
  - ABSCESS [None]
  - PERITONITIS [None]
